FAERS Safety Report 25283875 (Version 5)
Quarter: 2025Q3

REPORT INFORMATION
  Report Type: Spontaneous
  Country: US (occurrence: US)
  Receive Date: 20250508
  Receipt Date: 20250801
  Transmission Date: 20251020
  Serious: No
  Sender: PFIZER
  Company Number: US-PFIZER INC-202500059113

PATIENT
  Age: 2 Year
  Sex: Female

DRUGS (2)
  1. GENOTROPIN [Suspect]
     Active Substance: SOMATROPIN
     Indication: Small for dates baby
     Dosage: 0.2MG ALTERNATING WITH 0.4MG DAILY 7 DAYS/WEEK
     Dates: start: 202503
  2. GENOTROPIN [Suspect]
     Active Substance: SOMATROPIN
     Dosage: 0.2MG ALTERNATING WITH 0.4MG DAILY 7 DAYS/WEEK
     Dates: start: 202503

REACTIONS (4)
  - Injection site discharge [Unknown]
  - Needle issue [Unknown]
  - Liquid product physical issue [Unknown]
  - Device use error [Unknown]

NARRATIVE: CASE EVENT DATE: 20250626
